FAERS Safety Report 23659212 (Version 1)
Quarter: 2024Q1

REPORT INFORMATION
  Report Type: Spontaneous
  Country: AU (occurrence: AU)
  Receive Date: 20240321
  Receipt Date: 20240321
  Transmission Date: 20240410
  Serious: Yes (Death)
  Sender: FDA-Public Use
  Company Number: AU-AMGEN-AUSSP2024055313

PATIENT

DRUGS (4)
  1. PROLIA [Suspect]
     Active Substance: DENOSUMAB
     Indication: Osteoporosis
     Dosage: UNK
     Route: 065
  2. STRONTIUM RANELATE [Concomitant]
     Active Substance: STRONTIUM RANELATE
     Indication: Osteoporosis
     Dosage: UNK
     Route: 065
  3. RALOXIFENE [Concomitant]
     Active Substance: RALOXIFENE
     Indication: Osteoporosis
     Dosage: UNK
     Route: 065
  4. TERIPARATIDE [Concomitant]
     Active Substance: TERIPARATIDE
     Indication: Osteoporosis
     Dosage: UNK
     Route: 065

REACTIONS (1)
  - Death [Fatal]
